FAERS Safety Report 4603716-7 (Version None)
Quarter: 2005Q1

REPORT INFORMATION
  Report Type: 
  Country: None (occurrence: None)
  Receive Date: 20050310
  Receipt Date: 20050301
  Transmission Date: 20050727
  Serious: Yes (Hospitalization, Other)
  Sender: FDA-Public Use
  Company Number: PHNU2005DE01159

PATIENT
  Sex: Female

DRUGS (6)
  1. CO-DIOVAN FORTE [Suspect]
     Indication: HYPERTENSION
     Route: 048
     Dates: start: 20050201
  2. NOVOTHYRAL [Concomitant]
  3. EUTHYROX [Concomitant]
  4. MAGNESIUM [Concomitant]
  5. SELENIUM TRACE METAL ADDITIVE [Concomitant]
  6. CO-DIOVAN [Suspect]
     Indication: HYPERTENSION
     Dates: end: 20050201

REACTIONS (6)
  - ASTHMA [None]
  - CHEST DISCOMFORT [None]
  - DRUG INEFFECTIVE [None]
  - DYSPNOEA [None]
  - GASTROOESOPHAGEAL REFLUX DISEASE [None]
  - MITRAL VALVE INCOMPETENCE [None]
